FAERS Safety Report 20746944 (Version 1)
Quarter: 2022Q2

REPORT INFORMATION
  Report Type: Spontaneous
  Country: MX (occurrence: MX)
  Receive Date: 20220425
  Receipt Date: 20220425
  Transmission Date: 20220721
  Serious: Yes (Other)
  Sender: FDA-Public Use
  Company Number: MX-GILEAD-2022-0579113

PATIENT
  Age: 44 Year
  Sex: Male
  Weight: 77 kg

DRUGS (1)
  1. BIKTARVY [Suspect]
     Active Substance: BICTEGRAVIR SODIUM\EMTRICITABINE\TENOFOVIR ALAFENAMIDE FUMARATE
     Indication: HIV infection
     Dosage: UNK
     Route: 065
     Dates: start: 201907, end: 202109

REACTIONS (3)
  - Weight increased [Recovered/Resolved]
  - Fat tissue increased [Recovered/Resolved]
  - Gynaecomastia [Recovered/Resolved]
